FAERS Safety Report 20316813 (Version 2)
Quarter: 2022Q1

REPORT INFORMATION
  Report Type: Report from Study
  Country: US (occurrence: US)
  Receive Date: 20220110
  Receipt Date: 20220118
  Transmission Date: 20220423
  Serious: Yes (Hospitalization)
  Sender: FDA-Public Use
  Company Number: US-BAYER-2021A266143

PATIENT
  Age: 74 Year
  Sex: Female
  Weight: 54.875 kg

DRUGS (5)
  1. ADEMPAS [Suspect]
     Active Substance: RIOCIGUAT
     Indication: Pulmonary arterial hypertension
     Dosage: UNK
     Route: 048
     Dates: start: 20210216
  2. ADEMPAS [Suspect]
     Active Substance: RIOCIGUAT
     Indication: Pulmonary arterial hypertension
     Dosage: 2.5 MG, TID
     Route: 048
  3. WARFARIN [Suspect]
     Active Substance: WARFARIN
  4. OPSUMIT [Concomitant]
     Active Substance: MACITENTAN
  5. UPTRAVI [Concomitant]
     Active Substance: SELEXIPAG

REACTIONS (4)
  - Internal haemorrhage [None]
  - Malaise [None]
  - Dizziness [None]
  - Decreased appetite [None]

NARRATIVE: CASE EVENT DATE: 20211122
